FAERS Safety Report 5424722-9 (Version None)
Quarter: 2007Q3

REPORT INFORMATION
  Report Type: 
  Country: None (occurrence: None)
  Receive Date: 20070822
  Receipt Date: 20070822
  Transmission Date: 20080115
  Serious: Yes (Death, Hospitalization)
  Sender: FDA-Public Use
  Company Number: None

PATIENT
  Age: 58 Year
  Sex: Male
  Weight: 65.8 kg

DRUGS (23)
  1. RITUXIMAB [Suspect]
     Indication: HAIRY CELL LEUKAEMIA
     Dosage: 400MG OTHER IV
     Route: 042
     Dates: start: 20070502, end: 20070504
  2. RITUXIMAB [Suspect]
     Indication: HAIRY CELL LEUKAEMIA
     Dosage: 800MG OTHER IV
     Route: 042
     Dates: start: 20070509, end: 20070604
  3. ACETAMINOPHEN [Concomitant]
  4. ACYCLOVIR [Concomitant]
  5. ALBUTEROL [Concomitant]
  6. BISACODYL [Concomitant]
  7. CALCIUM ACETATE [Concomitant]
  8. DEXTROSE/NACL [Concomitant]
  9. DIAZEPAM [Concomitant]
  10. DOCUSATE [Concomitant]
  11. EPOETIN ALFA [Concomitant]
  12. FILGRASTIM [Concomitant]
  13. FLUCONAZOLE [Concomitant]
  14. IPRATROPIUM BROMIDE [Concomitant]
  15. LABETALOL HCL [Concomitant]
  16. LEVOFLOXACIN [Concomitant]
  17. MIDAZOLAM/NACL [Concomitant]
  18. MORPHINE [Concomitant]
  19. NOREPINEPHRINE [Concomitant]
  20. PANTOPRAZOLE SODIUM [Concomitant]
  21. PIPERACILLIN AND TAZOBACTAM [Concomitant]
  22. PREDNISONE TAB [Concomitant]
  23. VANCOMYCIN [Concomitant]

REACTIONS (8)
  - ASTHENIA [None]
  - CRYPTOGENIC ORGANISING PNEUMONIA [None]
  - FATIGUE [None]
  - FEBRILE NEUTROPENIA [None]
  - NIGHT SWEATS [None]
  - PANCYTOPENIA [None]
  - RENAL FAILURE ACUTE [None]
  - RESPIRATORY FAILURE [None]
